FAERS Safety Report 5360845-0 (Version None)
Quarter: 2007Q2

REPORT INFORMATION
  Report Type: 
  Country: None (occurrence: None)
  Receive Date: 20070618
  Receipt Date: 20070612
  Transmission Date: 20071010
  Serious: Yes (Hospitalization)
  Sender: FDA-Public Use
  Company Number: US-SHR-US-2007-022067

PATIENT
  Sex: Female

DRUGS (1)
  1. MIRENA [Suspect]
     Dosage: 20 A?G/DAY, CONT
     Route: 015
     Dates: start: 20070509, end: 20070529

REACTIONS (6)
  - ABDOMINAL PAIN [None]
  - HAEMOPHILUS INFECTION [None]
  - HEADACHE [None]
  - IUCD COMPLICATION [None]
  - PAIN [None]
  - VOMITING [None]
